FAERS Safety Report 8059096-0 (Version None)
Quarter: 2012Q1

REPORT INFORMATION
  Report Type: 
  Country: None (occurrence: None)
  Receive Date: 20120120
  Receipt Date: 20120110
  Transmission Date: 20120608
  Serious: Yes (Hospitalization)
  Sender: FDA-Public Use
  Company Number: US-JNJFOC-20101200868

PATIENT
  Age: 35 Year
  Sex: Female
  Weight: 60.8 kg

DRUGS (5)
  1. HYDROCODONE BITARTRATE [Concomitant]
  2. COCAINE [Concomitant]
  3. EXTRA STRENGTH TYLENOL PM [Suspect]
     Indication: SLEEP DISORDER THERAPY
     Dosage: 2-4 PILLS EVERY NIGHT FOR SLEEP FOR MORE THAN 2 YEARS.
     Route: 048
  4. METHYLPHENIDATE [Concomitant]
     Indication: ATTENTION DEFICIT/HYPERACTIVITY DISORDER
     Dosage: TAKES OCCASIONAL DOSES
  5. EXTRA STRENGTH TYLENOL PM [Suspect]
     Dosage: TOOK A ^HANDFUL^ OF PILLS
     Route: 048
     Dates: start: 20101114, end: 20101114

REACTIONS (7)
  - TRANSAMINASES INCREASED [None]
  - NAUSEA [None]
  - ISCHAEMIC HEPATITIS [None]
  - VOMITING [None]
  - PROTHROMBIN TIME PROLONGED [None]
  - INTENTIONAL OVERDOSE [None]
  - URINARY RETENTION [None]
